FAERS Safety Report 22615599 (Version 1)
Quarter: 2023Q2

REPORT INFORMATION
  Report Type: Spontaneous
  Country: RU (occurrence: RU)
  Receive Date: 20230619
  Receipt Date: 20230619
  Transmission Date: 20230722
  Serious: Yes (Other)
  Sender: FDA-Public Use
  Company Number: RU-BAYER-2023A082579

PATIENT
  Age: 14 Year
  Sex: Female
  Weight: 60 kg

DRUGS (3)
  1. GADOBUTROL [Suspect]
     Active Substance: GADOBUTROL
     Indication: Magnetic resonance imaging head
     Dosage: 15 ML, ONCE
     Route: 042
     Dates: start: 20230607, end: 20230607
  2. METHOTREXATE [Concomitant]
     Active Substance: METHOTREXATE
  3. HUMIRA [Concomitant]
     Active Substance: ADALIMUMAB

REACTIONS (6)
  - Sneezing [Recovered/Resolved]
  - Vertigo [Recovered/Resolved]
  - Hyperhidrosis [Recovered/Resolved]
  - Nasal congestion [Recovered/Resolved]
  - Rhinorrhoea [Recovered/Resolved]
  - Lacrimation increased [Recovered/Resolved]

NARRATIVE: CASE EVENT DATE: 20230607
